FAERS Safety Report 12714531 (Version 3)
Quarter: 2016Q4

REPORT INFORMATION
  Report Type: Spontaneous
  Country: SE (occurrence: SE)
  Receive Date: 20160905
  Receipt Date: 20161019
  Transmission Date: 20170207
  Serious: Yes (Death)
  Sender: FDA-Public Use
  Company Number: SE-ROCHE-1825124

PATIENT
  Age: 71 Year
  Sex: Female

DRUGS (2)
  1. MABTHERA [Suspect]
     Active Substance: RITUXIMAB
     Indication: VASCULITIS
     Dosage: 500 MG EVERY SIXTH MONTH
     Route: 042
     Dates: start: 2015
  2. MABTHERA [Suspect]
     Active Substance: RITUXIMAB
     Dosage: MAINTAINANCE TREATMENT IN FEB/2016 AND AUG/2016
     Route: 042
     Dates: start: 201602

REACTIONS (2)
  - Dysphagia [Fatal]
  - Asphyxia [Fatal]

NARRATIVE: CASE EVENT DATE: 201608
